FAERS Safety Report 9749883 (Version 1)
Quarter: 2013Q4

REPORT INFORMATION
  Report Type: Spontaneous
  Country: DE (occurrence: DE)
  Receive Date: 20131212
  Receipt Date: 20131212
  Transmission Date: 20140711
  Serious: Yes (Other)
  Sender: FDA-Public Use
  Company Number: DE-TEVA-450138GER

PATIENT
  Age: 11 Year
  Sex: Male
  Weight: 47 kg

DRUGS (2)
  1. AMOXICILLIN-RATIOPHARM 500 MG [Suspect]
     Indication: TONSILLITIS BACTERIAL
     Route: 048
     Dates: start: 20131205
  2. AMOXICILLIN 1A PHARMA [Suspect]
     Indication: TONSILLITIS BACTERIAL
     Route: 048
     Dates: start: 20131203, end: 20131204

REACTIONS (3)
  - Blood pressure fluctuation [Not Recovered/Not Resolved]
  - Heart rate irregular [Not Recovered/Not Resolved]
  - Dizziness [Not Recovered/Not Resolved]
